FAERS Safety Report 9815837 (Version 2)
Quarter: 2014Q1

REPORT INFORMATION
  Report Type: Spontaneous
  Country: US (occurrence: US)
  Receive Date: 20140114
  Receipt Date: 20140114
  Transmission Date: 20141002
  Serious: Yes (Hospitalization)
  Sender: FDA-Public Use
  Company Number: US-GILEAD-2014-0092039

PATIENT
  Sex: Female

DRUGS (4)
  1. LETAIRIS [Suspect]
     Indication: PRODUCT USED FOR UNKNOWN INDICATION
     Dosage: 10 MG, QD
     Route: 048
     Dates: start: 20130729
  2. REMODULIN [Concomitant]
  3. ADCIRCA [Concomitant]
  4. MACITENTAN [Concomitant]

REACTIONS (7)
  - Swelling [Unknown]
  - Pain [Unknown]
  - Presyncope [Unknown]
  - Unevaluable event [Unknown]
  - Unevaluable event [Unknown]
  - Headache [Unknown]
  - Abdominal pain upper [Unknown]
